FAERS Safety Report 7081451-6 (Version None)
Quarter: 2010Q4

REPORT INFORMATION
  Report Type: 
  Country: None (occurrence: None)
  Receive Date: 20101102
  Receipt Date: 20101102
  Transmission Date: 20110411
  Serious: Yes (Hospitalization)
  Sender: FDA-Public Use
  Company Number: None

PATIENT
  Sex: Female
  Weight: 64 kg

DRUGS (8)
  1. ALIMTA [Suspect]
     Indication: LUNG CANCER METASTATIC
     Dosage: 400MG/M2 DAYS 1 AND 15 IV
     Route: 042
     Dates: start: 20101024
  2. TAXOTERE [Suspect]
     Indication: LUNG CANCER METASTATIC
     Dosage: 30MG/M2 DAYS 1 AND 15 IV
     Route: 042
     Dates: start: 20101025
  3. PROCHLORPERAZINE MALEATE [Concomitant]
  4. DEXAMETHASONE [Concomitant]
  5. OXYCONTIN EXTENDED RELEASE [Concomitant]
  6. PAXIL [Concomitant]
  7. CLONAZEPAM [Concomitant]
  8. WARFARIN [Concomitant]

REACTIONS (4)
  - CHEST PAIN [None]
  - DYSPNOEA [None]
  - LIVER FUNCTION TEST ABNORMAL [None]
  - PYREXIA [None]
